FAERS Safety Report 23761751 (Version 1)
Quarter: 2024Q2

REPORT INFORMATION
  Report Type: Spontaneous
  Country: US (occurrence: None)
  Receive Date: 20240419
  Receipt Date: 20240419
  Transmission Date: 20240715
  Serious: Yes (Other)
  Sender: FDA-Public Use
  Company Number: US-Unichem Pharmaceuticals (USA) Inc-UCM202404-000425

PATIENT
  Age: 64 Year
  Sex: Male

DRUGS (3)
  1. TRAMADOL HCL [Suspect]
     Active Substance: TRAMADOL HYDROCHLORIDE
     Indication: Product used for unknown indication
     Dosage: UNKNOWN
  2. VENLAFAXINE [Suspect]
     Active Substance: VENLAFAXINE HYDROCHLORIDE
     Indication: Product used for unknown indication
     Dosage: UNKNOWN
  3. ALEVE PM [Suspect]
     Active Substance: DIPHENHYDRAMINE HYDROCHLORIDE\NAPROXEN SODIUM
     Indication: Product used for unknown indication
     Dosage: UNKNOWN

REACTIONS (6)
  - Myoclonus [Recovered/Resolved]
  - Clonus [Recovered/Resolved]
  - Serotonin syndrome [Recovered/Resolved]
  - Somnolence [Recovered/Resolved]
  - Suicide attempt [Unknown]
  - Overdose [Unknown]
